FAERS Safety Report 23964563 (Version 3)
Quarter: 2024Q3

REPORT INFORMATION
  Report Type: Spontaneous
  Country: US (occurrence: US)
  Receive Date: 20240612
  Receipt Date: 20240830
  Transmission Date: 20241016
  Serious: No
  Sender: MYLAN
  Company Number: US-MYLANLABS-2024M1050029

PATIENT
  Sex: Male

DRUGS (1)
  1. BREYNA [Suspect]
     Active Substance: BUDESONIDE\FORMOTEROL FUMARATE
     Indication: Chronic obstructive pulmonary disease
     Dosage: 320/9 MICROGRAM, BID (2 PUFFS IN THE MORNING AND 2 PUFFS IN THE EVENING)
     Route: 055

REACTIONS (5)
  - Dyspnoea [Unknown]
  - Therapeutic response decreased [Unknown]
  - Device delivery system issue [Unknown]
  - Product substitution issue [Unknown]
  - Product design issue [Unknown]
